FAERS Safety Report 7688830-4 (Version None)
Quarter: 2011Q3

REPORT INFORMATION
  Report Type: 
  Country: None (occurrence: None)
  Receive Date: 20110817
  Receipt Date: 20110805
  Transmission Date: 20111222
  Serious: Yes (Hospitalization, Other)
  Sender: FDA-Public Use
  Company Number: PHEH2009US18000

PATIENT
  Sex: Female

DRUGS (41)
  1. SENOKOT [Concomitant]
  2. DIPHENHYDRAMINE HYDROCHLORIDE [Concomitant]
     Dosage: 25 MG, Q6H PRN
     Route: 048
  3. PROTONIX [Concomitant]
     Dosage: 40 MG, BID
  4. NORMODYNE [Concomitant]
  5. NEURONTIN [Concomitant]
     Dosage: 100 MG, QHS
     Route: 048
  6. AREDIA [Suspect]
     Route: 042
     Dates: start: 20040501, end: 20050601
  7. ZOMETA [Suspect]
     Dates: start: 20050801, end: 20060601
  8. POTASSIUM [Concomitant]
  9. DROPERIDOL [Concomitant]
  10. VICODIN [Concomitant]
  11. TIGAN [Concomitant]
  12. ARANESP [Concomitant]
  13. COLACE [Concomitant]
  14. FASLODEX [Concomitant]
  15. XELODA [Concomitant]
  16. GEMZAR [Concomitant]
  17. RELISTOR [Concomitant]
     Route: 058
  18. PROTONIX [Concomitant]
  19. AVASTIN [Concomitant]
  20. VALIUM [Concomitant]
  21. DILAUDID [Concomitant]
  22. PROVIGIL [Concomitant]
  23. NAVELBINE [Concomitant]
  24. PERCOCET [Concomitant]
  25. COMPAZINE [Concomitant]
  26. CARBOPLATIN [Concomitant]
  27. XANAX [Concomitant]
     Dosage: 1 DF, Q6H
     Route: 048
  28. COUMADIN [Concomitant]
  29. STOOL SOFTENER [Concomitant]
  30. CEPHALEXIN [Concomitant]
     Dosage: 500 MG, Q6H
     Route: 048
  31. ENOXAPARIN [Concomitant]
     Dosage: 80 MG, Q12H
     Route: 058
  32. AMBIEN [Concomitant]
  33. TAXOTERE [Concomitant]
  34. TAXOL [Concomitant]
  35. LASIX [Concomitant]
  36. SYNTHROID [Concomitant]
  37. TAMOXIFEN CITRATE [Concomitant]
  38. DURAGESIC-100 [Concomitant]
     Dosage: 1 DF, Q72H
     Route: 061
  39. ROFECOXIB [Concomitant]
     Dosage: 2 DF, QD
     Route: 048
  40. REGLAN [Concomitant]
     Route: 017
  41. LAMICTAL [Concomitant]
     Dosage: 3 DF, BID
     Route: 048

REACTIONS (42)
  - BACK PAIN [None]
  - DYSPNOEA [None]
  - ANAEMIA [None]
  - NEURITIS [None]
  - THROMBOCYTOPENIA [None]
  - EPISTAXIS [None]
  - DECREASED APPETITE [None]
  - INFECTION [None]
  - BURSITIS [None]
  - STOMATITIS [None]
  - ACETABULUM FRACTURE [None]
  - MUSCULOSKELETAL PAIN [None]
  - HYPOKALAEMIA [None]
  - PLEURAL EFFUSION [None]
  - FATIGUE [None]
  - PRURITUS [None]
  - DRY MOUTH [None]
  - NAUSEA [None]
  - VOMITING [None]
  - RADICULITIS BRACHIAL [None]
  - RADICULOPATHY [None]
  - CHEST PAIN [None]
  - JOINT EFFUSION [None]
  - NEUROPATHY PERIPHERAL [None]
  - HYPOAESTHESIA [None]
  - PAIN [None]
  - WHITE BLOOD CELL COUNT DECREASED [None]
  - OESOPHAGITIS [None]
  - BONE PAIN [None]
  - HYPOMAGNESAEMIA [None]
  - DYSPEPSIA [None]
  - TEMPERATURE INTOLERANCE [None]
  - PULMONARY EMBOLISM [None]
  - OSTEONECROSIS OF JAW [None]
  - DEFORMITY [None]
  - CONSTIPATION [None]
  - HERPES ZOSTER [None]
  - BREAST CANCER METASTATIC [None]
  - METASTASES TO BONE [None]
  - METASTASES TO LUNG [None]
  - ARTHRALGIA [None]
  - VARICELLA [None]
